FAERS Safety Report 9816877 (Version 1)
Quarter: 2014Q1

REPORT INFORMATION
  Report Type: Spontaneous
  Country: US (occurrence: US)
  Receive Date: 20140114
  Receipt Date: 20140114
  Transmission Date: 20141002
  Serious: No
  Sender: FDA-Public Use
  Company Number: US-ENDO PHARMACEUTICALS INC.-ENDC20130041

PATIENT
  Sex: Female

DRUGS (1)
  1. ENDOCET 7.5MG/325MG [Suspect]
     Indication: PAIN
     Dosage: 30/1300MG
     Route: 048
     Dates: start: 2010, end: 20130918

REACTIONS (2)
  - Fibromyalgia [Unknown]
  - Drug effect decreased [Recovered/Resolved]
